FAERS Safety Report 19486479 (Version 1)
Quarter: 2021Q3

REPORT INFORMATION
  Report Type: Spontaneous
  Country: PL (occurrence: PL)
  Receive Date: 20210702
  Receipt Date: 20210702
  Transmission Date: 20211014
  Serious: Yes (Other)
  Sender: FDA-Public Use
  Company Number: PL-ORGANON-O2107POL000085

PATIENT
  Sex: Female

DRUGS (4)
  1. ENARENAL [Concomitant]
     Active Substance: ENALAPRIL
     Dosage: UNK
  2. ACENOCOUMAROL [Concomitant]
     Active Substance: ACENOCOUMAROL
     Dosage: UNK
  3. ZOCOR [Suspect]
     Active Substance: SIMVASTATIN
     Dosage: 20 MILLIGRAM, ONCE A DAY AT EVENING
     Route: 048
     Dates: start: 1997
  4. SECTRAL [Concomitant]
     Active Substance: ACEBUTOLOL HYDROCHLORIDE
     Dosage: UNK

REACTIONS (9)
  - Cerebrovascular accident [Unknown]
  - Myocardial infarction [Unknown]
  - Gastrooesophageal reflux disease [Unknown]
  - Cerebrovascular accident [Unknown]
  - Cerebrovascular accident [Unknown]
  - Pharyngeal swelling [Unknown]
  - Product dose omission in error [Unknown]
  - Constipation [Unknown]
  - Dysgeusia [Recovered/Resolved]

NARRATIVE: CASE EVENT DATE: 2010
